FAERS Safety Report 17556097 (Version 1)
Quarter: 2020Q1

REPORT INFORMATION
  Report Type: Spontaneous
  Country: US (occurrence: US)
  Receive Date: 20200311
  Receipt Date: 20200311
  Transmission Date: 20200409
  Serious: No
  Sender: FDA-Public Use
  Company Number: None

PATIENT
  Age: 54 Year
  Sex: Female

DRUGS (1)
  1. TASIGNA [Suspect]
     Active Substance: NILOTINIB
     Indication: CHRONIC MYELOID LEUKAEMIA
     Route: 048
     Dates: start: 20200310

REACTIONS (5)
  - Gastric disorder [None]
  - Headache [None]
  - Nausea [None]
  - Diarrhoea [None]
  - Drug interaction [None]

NARRATIVE: CASE EVENT DATE: 20200311
